FAERS Safety Report 11803238 (Version 1)
Quarter: 2015Q4

REPORT INFORMATION
  Report Type: Spontaneous
  Country: CH (occurrence: CH)
  Receive Date: 20151204
  Receipt Date: 20151204
  Transmission Date: 20160305
  Serious: Yes (Disabling)
  Sender: FDA-Public Use
  Company Number: CH-BAYER-2015-475579

PATIENT
  Age: 59 Year
  Sex: Male
  Weight: 98 kg

DRUGS (10)
  1. MIMPARA [CINACALCET HYDROCHLORIDE] [Suspect]
     Active Substance: CINACALCET HYDROCHLORIDE
     Dosage: 30 MG, QD
     Route: 048
  2. SOFOSBUVIR [Suspect]
     Active Substance: SOFOSBUVIR
     Indication: CHRONIC HEPATITIS C
     Dosage: 200 MG, QD
     Route: 048
     Dates: start: 20150715
  3. OMEPRAZOL [Suspect]
     Active Substance: OMEPRAZOLE
     Dosage: 20 MG, BID
     Route: 048
  4. ISOPHANE INSULIN [Suspect]
     Active Substance: INSULIN NOS
     Route: 058
  5. ENALAPRIL [Suspect]
     Active Substance: ENALAPRIL
     Dosage: 5 MG, QD
     Route: 048
  6. TORASEMIDE [Suspect]
     Active Substance: TORSEMIDE
     Dosage: 200 MG, QD
     Route: 048
  7. ASPIRIN CARDIO [Suspect]
     Active Substance: ASPIRIN
     Dosage: 100 MG, QD
     Route: 048
  8. PROGRAF [Suspect]
     Active Substance: TACROLIMUS\TACROLIMUS ANHYDROUS
     Dosage: 1 MG, QD
     Route: 048
  9. PREDNISONE. [Suspect]
     Active Substance: PREDNISONE
     Dosage: 5 MG, QD
     Route: 048
  10. METOPROLOL [Suspect]
     Active Substance: METOPROLOL
     Dosage: 200 MG, QD
     Route: 048

REACTIONS (3)
  - Hemiparesis [Recovering/Resolving]
  - Embolic stroke [Recovering/Resolving]
  - Speech disorder [Recovering/Resolving]

NARRATIVE: CASE EVENT DATE: 20151021
